FAERS Safety Report 19492648 (Version 1)
Quarter: 2021Q3

REPORT INFORMATION
  Report Type: Spontaneous
  Country: US (occurrence: US)
  Receive Date: 20210705
  Receipt Date: 20210705
  Transmission Date: 20211014
  Serious: Yes (Life-Threatening, Hospitalization, Other)
  Sender: FDA-Public Use
  Company Number: US-BION-009898

PATIENT
  Age: 22 Year
  Sex: Male

DRUGS (2)
  1. SERTRALINE [Concomitant]
     Active Substance: SERTRALINE HYDROCHLORIDE
     Indication: DEPRESSION
  2. LOPERAMIDE HYDROCHLORIDE. [Suspect]
     Active Substance: LOPERAMIDE HYDROCHLORIDE
     Dosage: MAXIMUM DOSE OF APPROXIMATELY 600 MG, TWO TO THREE TIMES PER WEEK FOR 2 MONTHS TO SELF?TREAT ANXIETY
     Route: 048

REACTIONS (4)
  - Intentional product misuse [Unknown]
  - Drug level increased [Unknown]
  - Torsade de pointes [Recovering/Resolving]
  - Brugada syndrome [Recovering/Resolving]
